FAERS Safety Report 10557226 (Version 2)
Quarter: 2014Q4

REPORT INFORMATION
  Report Type: Spontaneous
  Country: US (occurrence: US)
  Receive Date: 20141031
  Receipt Date: 20141204
  Transmission Date: 20150529
  Serious: Yes (Other)
  Sender: FDA-Public Use
  Company Number: US-JNJFOC-20141018514

PATIENT
  Sex: Female
  Weight: 69.85 kg

DRUGS (4)
  1. XARELTO [Suspect]
     Active Substance: RIVAROXABAN
     Indication: DEEP VEIN THROMBOSIS
     Route: 048
     Dates: start: 20140811
  2. PREDNISONE. [Concomitant]
     Active Substance: PREDNISONE
     Route: 048
     Dates: start: 20140530
  3. VASOTEC [Concomitant]
     Active Substance: ENALAPRIL MALEATE
     Indication: HYPERTENSION
     Route: 048
     Dates: start: 20140916
  4. CELL CEPT [Concomitant]
     Route: 048
     Dates: start: 20140530

REACTIONS (6)
  - Pain in extremity [Unknown]
  - Skin mass [Unknown]
  - Arthropod bite [Unknown]
  - Oedema [Unknown]
  - Deep vein thrombosis [Not Recovered/Not Resolved]
  - Rash [Unknown]
